FAERS Safety Report 4317497-8 (Version None)
Quarter: 2004Q1

REPORT INFORMATION
  Report Type: 
  Country: None (occurrence: None)
  Receive Date: 20040312
  Receipt Date: 20040301
  Transmission Date: 20041129
  Serious: Yes (Death, Life-Threatening, Hospitalization)
  Sender: FDA-Public Use
  Company Number: HQWYE475119JAN04

PATIENT
  Age: 82 Year
  Sex: Male

DRUGS (10)
  1. ANCARON (AMIODARONE, TABLET) [Suspect]
     Indication: VENTRICULAR TACHYCARDIA
     Dosage: 100 MG 2X PER 1 DAY, ORAL
     Route: 048
     Dates: start: 19971129, end: 20031223
  2. DIOVAN [Concomitant]
  3. FUROSEMIDE [Concomitant]
  4. ISOSORBIDE DINITRATE [Concomitant]
  5. WARFARIN POTASSIUM (WARFARIN POTASSIUM) [Concomitant]
  6. ASPIRIN [Concomitant]
  7. RANITIDINE HYDROCHLORIDE [Concomitant]
  8. CARBOCISTEINE (CARBOCISTEINE) [Concomitant]
  9. MAGNESIUM SULFATE [Concomitant]
  10. SENNOSIDE A (SENNOSIDE A) [Concomitant]

REACTIONS (3)
  - INTERSTITIAL LUNG DISEASE [None]
  - INTESTINAL PERFORATION [None]
  - PERITONITIS [None]
